FAERS Safety Report 12618598 (Version 1)
Quarter: 2016Q3

REPORT INFORMATION
  Report Type: Spontaneous
  Country: GB (occurrence: GB)
  Receive Date: 20160803
  Receipt Date: 20160803
  Transmission Date: 20161109
  Serious: Yes (Other)
  Sender: FDA-Public Use
  Company Number: GB-APOTEX-2016AP009958

PATIENT
  Sex: Male

DRUGS (16)
  1. PAROXETINE. [Suspect]
     Active Substance: PAROXETINE
     Dosage: UNK
     Route: 065
     Dates: start: 20001020, end: 20040911
  2. PAROXETINE. [Suspect]
     Active Substance: PAROXETINE
     Dosage: 60 MG, QD
     Route: 065
     Dates: start: 20010702
  3. PAROXETINE TABLET [Suspect]
     Active Substance: PAROXETINE
     Dosage: 20 MG, QD
     Route: 065
     Dates: start: 20010219, end: 20040827
  4. PAROXETINE TABLET [Suspect]
     Active Substance: PAROXETINE
     Dosage: 30 MG, QD
     Route: 065
     Dates: start: 20001213, end: 20020619
  5. PAROXETINE. [Suspect]
     Active Substance: PAROXETINE
     Dosage: 50 MG, QD
     Route: 065
     Dates: start: 20010514
  6. SEROXAT [Suspect]
     Active Substance: PAROXETINE HYDROCHLORIDE
     Dosage: 60 MG, UNK
     Route: 065
     Dates: start: 200107
  7. REBOXETINE [Concomitant]
     Active Substance: REBOXETINE
     Dosage: UNK
     Dates: start: 20040521
  8. PROZAC [Concomitant]
     Active Substance: FLUOXETINE HYDROCHLORIDE
     Dosage: UNK
     Dates: start: 20040827
  9. LORMETAZEPAM [Concomitant]
     Active Substance: LORMETAZEPAM
     Dosage: UNK
  10. SEROXAT [Suspect]
     Active Substance: PAROXETINE HYDROCHLORIDE
     Dosage: 50 MG, UNK
     Route: 065
  11. DOTHIEPIN [Concomitant]
     Active Substance: DOTHIEPIN\DOTHIEPIN HYDROCHLORIDE
     Dosage: UNK
     Dates: start: 20040207
  12. DIAZEPAM. [Concomitant]
     Active Substance: DIAZEPAM
     Dosage: UNK
  13. PAROXETINE TABLET [Suspect]
     Active Substance: PAROXETINE
     Indication: PRODUCT USED FOR UNKNOWN INDICATION
     Dosage: 10 MG, QD
     Route: 065
     Dates: start: 20040422
  14. PAROXETINE ORAL SOLUTION [Suspect]
     Active Substance: PAROXETINE
     Indication: PRODUCT USED FOR UNKNOWN INDICATION
     Dosage: 10MG/5ML
     Route: 065
     Dates: start: 20030717, end: 20050811
  15. SEROXAT [Suspect]
     Active Substance: PAROXETINE HYDROCHLORIDE
     Indication: ANXIETY
     Dosage: 20 MG, UNK
     Route: 065
     Dates: start: 200011
  16. LORAZEPAM. [Concomitant]
     Active Substance: LORAZEPAM
     Dosage: UNK

REACTIONS (53)
  - Dizziness [Unknown]
  - Eye pain [Unknown]
  - Abnormal dreams [Unknown]
  - Paraesthesia [Unknown]
  - Condition aggravated [Unknown]
  - Neck pain [Unknown]
  - Energy increased [Unknown]
  - Lethargy [Unknown]
  - Headache [Unknown]
  - Panic reaction [Unknown]
  - Flight of ideas [Unknown]
  - Abdominal distension [Unknown]
  - Panic attack [Unknown]
  - Hypersomnia [Unknown]
  - Cognitive disorder [Unknown]
  - Memory impairment [Unknown]
  - Hypertension [Unknown]
  - Drug dependence [Unknown]
  - Anxiety [Unknown]
  - Weight decreased [Unknown]
  - Gait disturbance [Unknown]
  - Fungal infection [Unknown]
  - Aggression [Unknown]
  - Agitation [Unknown]
  - Diarrhoea [Unknown]
  - Irritability [Unknown]
  - Migraine [Unknown]
  - Hostility [Unknown]
  - Constipation [Unknown]
  - Dry mouth [Unknown]
  - Musculoskeletal pain [Unknown]
  - Depersonalisation/derealisation disorder [Unknown]
  - Food craving [Unknown]
  - Mood swings [Unknown]
  - Social anxiety disorder [Unknown]
  - Suicidal ideation [Unknown]
  - Intentional self-injury [Unknown]
  - Thinking abnormal [Unknown]
  - Insomnia [Unknown]
  - Personality change [Unknown]
  - Hallucination, auditory [Unknown]
  - Impulsive behaviour [Unknown]
  - Paranoia [Unknown]
  - Drug withdrawal syndrome [Unknown]
  - Acne [Unknown]
  - Coordination abnormal [Unknown]
  - Disturbance in attention [Unknown]
  - Drug ineffective [Unknown]
  - Akathisia [Unknown]
  - Depression [Unknown]
  - Mood altered [Unknown]
  - Hyperhidrosis [Unknown]
  - Dyssomnia [Unknown]

NARRATIVE: CASE EVENT DATE: 2001
